FAERS Safety Report 4354622-7 (Version None)
Quarter: 2004Q2

REPORT INFORMATION
  Report Type: 
  Country: None (occurrence: None)
  Receive Date: 20040506
  Receipt Date: 20040506
  Transmission Date: 20050107
  Serious: Yes (Hospitalization)
  Sender: FDA-Public Use
  Company Number: None

PATIENT
  Sex: Male

DRUGS (1)
  1. DAPSONE [Suspect]
     Indication: INFECTION PROPHYLAXIS
     Dosage: 100 MG PO QD
     Route: 048

REACTIONS (1)
  - STEVENS-JOHNSON SYNDROME [None]
